FAERS Safety Report 4451451-0 (Version None)
Quarter: 2004Q3

REPORT INFORMATION
  Report Type: 
  Country: None (occurrence: None)
  Receive Date: 20040915
  Receipt Date: 20040901
  Transmission Date: 20050211
  Serious: Yes (Other)
  Sender: FDA-Public Use
  Company Number: 2004062831

PATIENT
  Sex: Female

DRUGS (6)
  1. NEURONTIN [Suspect]
     Indication: ILL-DEFINED DISORDER
  2. OXYCOCET (OXYCODONE HYDROCHLORIDE, PARACETAMOL) [Suspect]
     Indication: ILL-DEFINED DISORDER
  3. PAROXETINE HCL [Suspect]
     Indication: ILL-DEFINED DISORDER
  4. ROFECOXIB [Suspect]
     Indication: ILL-DEFINED DISORDER
  5. METHYLPHENIDATE HYDROCHLORIDE [Suspect]
     Indication: ILL-DEFINED DISORDER
  6. FENTANYL [Suspect]
     Indication: ILL-DEFINED DISORDER

REACTIONS (4)
  - ARTHRALGIA [None]
  - BACK PAIN [None]
  - OSTEOARTHRITIS [None]
  - PAIN IN EXTREMITY [None]
